FAERS Safety Report 23556850 (Version 2)
Quarter: 2024Q1

REPORT INFORMATION
  Report Type: Report from Study
  Country: KR (occurrence: KR)
  Receive Date: 20240223
  Receipt Date: 20240320
  Transmission Date: 20240409
  Serious: Yes (Hospitalization)
  Sender: FDA-Public Use
  Company Number: KR-SUN PHARMACEUTICAL INDUSTRIES LTD-2024RR-432142

PATIENT
  Age: 62 Year
  Sex: Male

DRUGS (33)
  1. CAPECITABINE [Concomitant]
     Active Substance: CAPECITABINE
     Indication: Adenocarcinoma gastric
     Dosage: 1000 MILLIGRAM/SQ. METER, BID -  1-15 OF 21-DAY CYCLE
     Route: 048
     Dates: start: 20230316
  2. OXALIPLATIN [Suspect]
     Active Substance: OXALIPLATIN
     Indication: Adenocarcinoma gastric
     Dosage: 130 MILLIGRAM/SQ. METER - EVERY 3 WEEKS
     Route: 040
     Dates: start: 20230316
  3. TRASTUZUMAB [Suspect]
     Active Substance: TRASTUZUMAB
     Indication: Adenocarcinoma gastric
     Dosage: 8 MILLIGRAM/KILOGRAM - EVERY 3 WEEKS
     Route: 040
     Dates: start: 20230316
  4. OLIMEL E [Concomitant]
     Active Substance: AMINO ACIDS\DEXTROSE\ELECTROLYTES NOS\SOYBEAN OIL
     Indication: Product used for unknown indication
     Dosage: INJECTION
     Dates: start: 20230324, end: 20230329
  5. PLASMA SOLUTION A [Concomitant]
     Indication: Product used for unknown indication
     Dosage: UNK
     Route: 065
     Dates: start: 20230324, end: 20230329
  6. PIPERACILLIN SODIUM\TAZOBACTAM SODIUM [Concomitant]
     Active Substance: PIPERACILLIN SODIUM\TAZOBACTAM SODIUM
     Indication: Product used for unknown indication
     Dosage: INJECTION
     Dates: start: 20230325, end: 20230329
  7. HERBALS [Concomitant]
     Active Substance: HERBALS
     Indication: Product used for unknown indication
     Dosage: TABLET
     Dates: start: 20230307
  8. SOXINASE [Concomitant]
     Indication: Product used for unknown indication
     Dosage: TABLET
     Dates: start: 20230307
  9. NITROFURANTOIN [Concomitant]
     Active Substance: NITROFURANTOIN
     Indication: Product used for unknown indication
     Dosage: TABLET
     Dates: start: 20230307
  10. NORZYME [Concomitant]
     Indication: Product used for unknown indication
     Dosage: CAPSULE
     Dates: start: 20230307
  11. ASPIRIN [Concomitant]
     Active Substance: ASPIRIN
     Indication: Product used for unknown indication
     Dosage: TABLET
  12. CLOPIDOGREL BISULFATE [Concomitant]
     Active Substance: CLOPIDOGREL BISULFATE
     Indication: Product used for unknown indication
     Dosage: TABLET
  13. EZETIMIBE\ROSUVASTATIN [Concomitant]
     Active Substance: EZETIMIBE\ROSUVASTATIN
     Indication: Product used for unknown indication
     Dosage: TABLET
  14. MEGACE F [Concomitant]
     Indication: Product used for unknown indication
     Dosage: TABLET
     Dates: start: 20230317
  15. RAMOSETRON HYDROCHLORIDE [Concomitant]
     Active Substance: RAMOSETRON HYDROCHLORIDE
     Indication: Product used for unknown indication
     Dosage: UNK
     Dates: start: 20230317, end: 20230330
  16. OXYCODONE HYDROCHLORIDE [Concomitant]
     Active Substance: OXYCODONE HYDROCHLORIDE
     Indication: Product used for unknown indication
     Dosage: INJECTION
     Dates: start: 20230324, end: 20230327
  17. NAXEN-F [Concomitant]
     Indication: Cancer pain
     Dosage: TABLET
     Dates: start: 20230328
  18. LAFUTIDINE [Concomitant]
     Active Substance: LAFUTIDINE
     Indication: Product used for unknown indication
     Dosage: UNK
     Dates: start: 20230328
  19. OXYCONTIN [Concomitant]
     Active Substance: OXYCODONE HYDROCHLORIDE
     Indication: Product used for unknown indication
     Dosage: UNK
     Dates: start: 20230328
  20. HEPARIN [Concomitant]
     Active Substance: HEPARIN SODIUM
     Indication: Product used for unknown indication
     Dosage: INJECTION
     Dates: start: 20230329, end: 20230329
  21. LIDOCAINE [Concomitant]
     Active Substance: LIDOCAINE
     Indication: Product used for unknown indication
     Dosage: UNK
     Dates: start: 20230329, end: 20230329
  22. GENTAMICIN [Concomitant]
     Active Substance: GENTAMICIN
     Indication: Product used for unknown indication
     Dosage: UNK
     Dates: start: 20230329, end: 20230329
  23. AKYNZEO [Concomitant]
     Indication: Premedication
     Dosage: 10 MILLIGRAM, QD
     Dates: start: 20230406, end: 20230406
  24. DEXAMETHASONE [Concomitant]
     Active Substance: DEXAMETHASONE
     Indication: Premedication
     Dosage: 10 UNK
     Dates: start: 20230406, end: 20230406
  25. DEXAMETHASONE [Concomitant]
     Active Substance: DEXAMETHASONE
     Dosage: 10 MILLIGRAM
     Dates: start: 20230427
  26. Xyzal Tab [Concomitant]
     Indication: Dry skin
     Dosage: UNK
     Dates: start: 20230426, end: 20230503
  27. Dethasone oint [Concomitant]
     Indication: Dry skin
     Dosage: UNK
     Dates: start: 20230426, end: 20230506
  28. LYRICA CAP [Concomitant]
     Indication: Neuropathy peripheral
     Dosage: 75 MILLIGRAM
     Dates: start: 20230410
  29. ALMAGEL F [Concomitant]
     Indication: Prophylaxis
     Dosage: UNK
     Dates: start: 20230410
  30. LaminaG [Concomitant]
     Indication: Prophylaxis
     Dosage: UNK
     Dates: start: 20230410
  31. DULACKHAN EASY [Concomitant]
     Indication: Prophylaxis
     Dosage: UNK
     Dates: start: 20230412, end: 20230427
  32. KCAB ODT [Concomitant]
     Indication: Prophylaxis
     Dosage: 50 MILLIGRAM, QD
     Route: 048
     Dates: start: 20230413
  33. Feroba-You SR [Concomitant]
     Indication: Anaemia
     Dosage: UNK, QD
     Route: 048
     Dates: start: 20230426

REACTIONS (1)
  - Asthenia [Recovered/Resolved]

NARRATIVE: CASE EVENT DATE: 20230410
